FAERS Safety Report 5965025-3 (Version None)
Quarter: 2008Q4

REPORT INFORMATION
  Report Type: 
  Country: None (occurrence: None)
  Receive Date: 20081124
  Receipt Date: 20081124
  Transmission Date: 20090506
  Serious: No
  Sender: FDA-Public Use
  Company Number: None

PATIENT
  Age: 4 Year
  Sex: Male
  Weight: 19.0511 kg

DRUGS (1)
  1. PULMICORT RESPULES [Suspect]
     Indication: PROPHYLAXIS
     Dosage: ONE CAPSULE TWICE A DAY INHAL
     Dates: start: 20081117, end: 20081122

REACTIONS (8)
  - FATIGUE [None]
  - ORAL PAIN [None]
  - PSYCHOMOTOR HYPERACTIVITY [None]
  - RASH [None]
  - RESTLESSNESS [None]
  - SKIN DISCOLOURATION [None]
  - SKIN DISORDER [None]
  - SKIN IRRITATION [None]
